FAERS Safety Report 10450373 (Version 1)
Quarter: 2014Q3

REPORT INFORMATION
  Report Type: Spontaneous
  Country: FR (occurrence: FR)
  Receive Date: 20140912
  Receipt Date: 20140912
  Transmission Date: 20150326
  Serious: Yes (Hospitalization)
  Sender: FDA-Public Use
  Company Number: FR-GE HEALTHCARE MEDICAL DIAGNOSTICS-OMPQ-PR-1409S-1095

PATIENT
  Age: 61 Year
  Sex: Male

DRUGS (11)
  1. BURINEX [Concomitant]
     Active Substance: BUMETANIDE
  2. EZETROL [Concomitant]
     Active Substance: EZETIMIBE
  3. AMLOR [Concomitant]
     Active Substance: AMLODIPINE BESYLATE
  4. TEMERIT [Concomitant]
     Active Substance: NEBIVOLOL
  5. OMNIPAQUE [Suspect]
     Active Substance: IOHEXOL
     Indication: ACUTE CORONARY SYNDROME
     Route: 013
     Dates: start: 20140811, end: 20140811
  6. COVERSYL [Concomitant]
     Active Substance: PERINDOPRIL
  7. INEXIUM [Concomitant]
     Active Substance: ESOMEPRAZOLE
  8. OMNIPAQUE [Suspect]
     Active Substance: IOHEXOL
     Indication: DIAGNOSTIC PROCEDURE
  9. CORDARONE [Concomitant]
     Active Substance: AMIODARONE HYDROCHLORIDE
  10. KARDEGIC [Concomitant]
     Active Substance: ASPIRIN LYSINE
  11. PRIMPERAN [Concomitant]
     Active Substance: METOCLOPRAMIDE HYDROCHLORIDE

REACTIONS (1)
  - Renal failure acute [Not Recovered/Not Resolved]

NARRATIVE: CASE EVENT DATE: 20140812
